FAERS Safety Report 7534285-X (Version None)
Quarter: 2011Q2

REPORT INFORMATION
  Report Type: 
  Country: None (occurrence: None)
  Receive Date: 20110608
  Receipt Date: 20061229
  Transmission Date: 20111010
  Serious: Yes (Hospitalization)
  Sender: FDA-Public Use
  Company Number: PHFR2006GB03058

PATIENT
  Sex: Male

DRUGS (1)
  1. CLOZAPINE [Suspect]
     Indication: SCHIZOPHRENIA
     Dosage: 350 MG, DAILY
     Route: 048

REACTIONS (2)
  - IRITIS [None]
  - PHOTOPHOBIA [None]
